FAERS Safety Report 21536104 (Version 1)
Quarter: 2022Q4

REPORT INFORMATION
  Report Type: Spontaneous
  Country: CN (occurrence: CN)
  Receive Date: 20221101
  Receipt Date: 20221101
  Transmission Date: 20230113
  Serious: Yes (Hospitalization)
  Sender: FDA-Public Use
  Company Number: CN-PFIZER INC-PV202200091831

PATIENT
  Age: 24 Year
  Sex: Male
  Weight: 62.7 kg

DRUGS (1)
  1. CYTARABINE [Suspect]
     Active Substance: CYTARABINE
     Indication: Chemotherapy
     Dosage: 4 G, EVERY 12 HOURS
     Route: 041
     Dates: start: 20220924, end: 20220926

REACTIONS (3)
  - Drug hypersensitivity [Recovering/Resolving]
  - Pyrexia [Recovered/Resolved]
  - Rash pruritic [Recovering/Resolving]

NARRATIVE: CASE EVENT DATE: 20220925
